FAERS Safety Report 18405187 (Version 1)
Quarter: 2020Q4

REPORT INFORMATION
  Report Type: Spontaneous
  Country: US (occurrence: US)
  Receive Date: 20201020
  Receipt Date: 20201020
  Transmission Date: 20210114
  Serious: Yes (Hospitalization)
  Sender: FDA-Public Use
  Company Number: None

PATIENT
  Age: 31 Year
  Sex: Male

DRUGS (7)
  1. OMPERAZOLE [Concomitant]
     Active Substance: OMEPRAZOLE
  2. DOXYCYC MONO [Concomitant]
     Active Substance: DOXYCYCLINE
  3. PANTOPRAZOLE [Concomitant]
     Active Substance: PANTOPRAZOLE
  4. TRAMADOL. [Concomitant]
     Active Substance: TRAMADOL
  5. AMOXICILLIN. [Concomitant]
     Active Substance: AMOXICILLIN
  6. CLARITHROMYC [Concomitant]
  7. HUMIRA [Suspect]
     Active Substance: ADALIMUMAB
     Indication: HIDRADENITIS
     Dosage: ?          OTHER FREQUENCY:WEEKLY;?
     Route: 058
     Dates: start: 20190403

REACTIONS (3)
  - Therapy interrupted [None]
  - Helicobacter infection [None]
  - White blood cell count abnormal [None]

NARRATIVE: CASE EVENT DATE: 20201019
